FAERS Safety Report 6746067-7 (Version None)
Quarter: 2010Q2

REPORT INFORMATION
  Report Type: 
  Country: None (occurrence: None)
  Receive Date: 20100528
  Receipt Date: 20100519
  Transmission Date: 20101027
  Serious: Yes (Other)
  Sender: FDA-Public Use
  Company Number: US-SANOFI-AVENTIS-2010SA029334

PATIENT
  Age: 58 Year
  Sex: Female

DRUGS (5)
  1. MULTAQ [Suspect]
     Route: 048
  2. COUMADIN [Suspect]
     Dosage: 5MG M, W, F10MG OTHER DAYS
     Route: 048
     Dates: start: 20100510, end: 20100518
  3. COUMADIN [Suspect]
     Dosage: 5MG SUN, MON, WED, FRI10MG TUE, THUR
     Route: 048
     Dates: start: 20100519
  4. METOPROLOL TARTRATE [Concomitant]
  5. DIGOXIN [Concomitant]
     Dates: end: 20100511

REACTIONS (1)
  - INTERNATIONAL NORMALISED RATIO INCREASED [None]
